FAERS Safety Report 8961581 (Version 4)
Quarter: 2013Q1

REPORT INFORMATION
  Report Type: Report from Study
  Country: DE (occurrence: DE)
  Receive Date: 20121213
  Receipt Date: 20130129
  Transmission Date: 20140127
  Serious: Yes (Hospitalization)
  Sender: FDA-Public Use
  Company Number: PHHO2012DE017640

PATIENT
  Sex: Female
  Weight: 63 kg

DRUGS (3)
  1. MYCOPHENOLIC ACID [Suspect]
     Indication: PANCREAS TRANSPLANT
     Dosage: 720 MG, BID
     Route: 048
     Dates: start: 20120826, end: 20121127
  2. DECORTIN [Concomitant]
     Indication: PANCREAS TRANSPLANT
     Dosage: 5 MG, QD
     Route: 048
     Dates: start: 20120825
  3. PROGRAF [Concomitant]
     Indication: PANCREAS TRANSPLANT
     Dosage: 2 MG, BID
     Route: 048
     Dates: start: 20120826

REACTIONS (5)
  - Complications of transplanted kidney [Recovering/Resolving]
  - Diarrhoea [Recovered/Resolved]
  - Dehydration [Recovered/Resolved]
  - Blood creatinine increased [Recovered/Resolved]
  - Kidney transplant rejection [Recovered/Resolved]
